FAERS Safety Report 6701229-X (Version None)
Quarter: 2010Q2

REPORT INFORMATION
  Report Type: 
  Country: None (occurrence: None)
  Receive Date: 20100427
  Receipt Date: 20100419
  Transmission Date: 20101027
  Serious: Yes (Hospitalization)
  Sender: FDA-Public Use
  Company Number: 1000011768

PATIENT
  Age: 81 Year
  Sex: Female
  Weight: 62 kg

DRUGS (5)
  1. MEMANTINE HCL [Suspect]
     Indication: DEMENTIA ALZHEIMER'S TYPE
     Dosage: 20 MG (20 MG, 1 IN 1 D),ORAL
     Route: 048
     Dates: end: 20100119
  2. REMINYL [Concomitant]
  3. ALDALIX [Concomitant]
  4. VENLAFAXINE [Concomitant]
  5. NEXIUM [Concomitant]

REACTIONS (2)
  - DEEP VEIN THROMBOSIS [None]
  - PULMONARY EMBOLISM [None]
